FAERS Safety Report 6035897-5 (Version None)
Quarter: 2009Q1

REPORT INFORMATION
  Report Type: 
  Country: None (occurrence: None)
  Receive Date: 20090113
  Receipt Date: 20090109
  Transmission Date: 20090719
  Serious: Yes (Hospitalization)
  Sender: FDA-Public Use
  Company Number: A0718185A

PATIENT
  Age: 62 Year
  Sex: Male
  Weight: 79.5 kg

DRUGS (12)
  1. AVANDIA [Suspect]
     Dosage: 4MG TWICE PER DAY
     Route: 048
     Dates: start: 20060223, end: 20070928
  2. AVANDAMET [Suspect]
     Route: 048
     Dates: start: 20031229, end: 20060110
  3. METFORMIN [Concomitant]
  4. GLUCOPHAGE [Concomitant]
  5. GLUCOTROL [Concomitant]
  6. DIABETA [Concomitant]
  7. LISINOPRIL [Concomitant]
  8. ASPIRIN [Concomitant]
  9. LOVAZA [Concomitant]
  10. MULTI-VITAMIN [Concomitant]
  11. SALSALATE [Concomitant]
  12. NIASPAN [Concomitant]

REACTIONS (2)
  - HEART INJURY [None]
  - MYOCARDIAL INFARCTION [None]
